FAERS Safety Report 9629867 (Version 4)
Quarter: 2013Q4

REPORT INFORMATION
  Report Type: Report from Study
  Country: US (occurrence: US)
  Receive Date: 20131017
  Receipt Date: 20131224
  Transmission Date: 20140711
  Serious: Yes (Hospitalization)
  Sender: FDA-Public Use
  Company Number: US-BRISTOL-MYERS SQUIBB COMPANY-19064856

PATIENT
  Age: 45 Year
  Sex: Male

DRUGS (4)
  1. ARIPIPRAZOLE [Suspect]
     Indication: BIPOLAR I DISORDER
     Dosage: 23MAY-13-05JUN13:14DAYS?STARTED 15MG ON 06-JUN-2013-16JUN13:11DAYS
     Route: 048
     Dates: start: 20130523, end: 20130616
  2. SEROQUEL [Concomitant]
     Dates: start: 2003
  3. METFORMIN [Concomitant]
     Dates: start: 2003
  4. GLUCOPHAGE [Concomitant]
     Dates: start: 2003

REACTIONS (2)
  - Bipolar I disorder [Recovered/Resolved]
  - Suicidal ideation [Recovered/Resolved]
